FAERS Safety Report 6801159-9 (Version None)
Quarter: 2010Q2

REPORT INFORMATION
  Report Type: 
  Country: None (occurrence: None)
  Receive Date: 20100629
  Receipt Date: 20100621
  Transmission Date: 20101027
  Serious: Yes (Other)
  Sender: FDA-Public Use
  Company Number: JP-PFIZER INC-2010077540

PATIENT
  Age: 58 Year
  Sex: Female

DRUGS (5)
  1. LIPITOR [Suspect]
     Indication: HYPERLIPIDAEMIA
     Dosage: 5 MG, DAILY
     Route: 048
     Dates: start: 20090512
  2. MYSLEE [Suspect]
     Dosage: 10 MG, DAILY
     Route: 048
     Dates: start: 20090605
  3. LUVOX [Suspect]
     Dosage: 75 MG, DAILY
     Route: 048
     Dates: start: 20090520, end: 20100601
  4. EURODIN [Concomitant]
     Dosage: UNK
     Route: 048
     Dates: start: 20090703
  5. AMLODIN [Concomitant]
     Dosage: UNK
     Route: 048
     Dates: start: 20090512

REACTIONS (1)
  - SHOPLIFTING [None]
